FAERS Safety Report 6261261-X (Version None)
Quarter: 2009Q3

REPORT INFORMATION
  Report Type: 
  Country: None (occurrence: None)
  Receive Date: 20090709
  Receipt Date: 20081023
  Transmission Date: 20100115
  Serious: No
  Sender: FDA-Public Use
  Company Number: US-KINGPHARMUSA00001-K200801232

PATIENT
  Sex: Female
  Weight: 70.295 kg

DRUGS (3)
  1. LEVOXYL [Suspect]
     Indication: HYPOTHYROIDISM
     Dosage: 25 MCG, QOD
     Route: 048
     Dates: start: 20030101, end: 20081023
  2. LEVOXYL [Suspect]
     Dosage: 50 MCG, QOD
     Route: 048
     Dates: start: 20030101, end: 20081023
  3. PRISTIQ [Concomitant]
     Indication: DEPRESSION
     Dosage: 50 MG, UNK
     Dates: start: 20080801

REACTIONS (3)
  - DEPRESSION [None]
  - PRURITUS [None]
  - URTICARIA [None]
